FAERS Safety Report 4842450-5 (Version None)
Quarter: 2005Q4

REPORT INFORMATION
  Report Type: 
  Country: None (occurrence: None)
  Receive Date: 20051129
  Receipt Date: 20051111
  Transmission Date: 20060501
  Serious: Yes (Other)
  Sender: FDA-Public Use
  Company Number: US200511000105

PATIENT
  Age: 70 Year
  Sex: Female

DRUGS (2)
  1. HUMULIN REGULAR (HUMAN INSULIN (RDNA ORIGIN)REGULAR) VIAL [Suspect]
     Dates: start: 19910101
  2. HUMULIN NPH (HUMAN INSULIN (RDNA ORIGIN)NPH) VIAL [Suspect]
     Dates: start: 19910101

REACTIONS (6)
  - ANKLE FRACTURE [None]
  - BLOOD GLUCOSE INCREASED [None]
  - LIMB INJURY [None]
  - LOWER LIMB FRACTURE [None]
  - ROAD TRAFFIC ACCIDENT [None]
  - SPINAL FRACTURE [None]
